FAERS Safety Report 8999723 (Version 2)
Quarter: 2013Q2

REPORT INFORMATION
  Report Type: Spontaneous
  Country: FI (occurrence: FI)
  Receive Date: 20130102
  Receipt Date: 20130523
  Transmission Date: 20140414
  Serious: Yes (Other)
  Sender: FDA-Public Use
  Company Number: FI-GLAXOSMITHKLINE-B0855690A

PATIENT
  Sex: Male

DRUGS (2)
  1. LAMICTAL [Suspect]
     Indication: EPILEPSY
     Dosage: 200MG TWICE PER DAY
     Route: 065
     Dates: start: 201006, end: 201107
  2. APYDAN [Concomitant]
     Dosage: 1800MG PER DAY

REACTIONS (4)
  - Systemic lupus erythematosus [Not Recovered/Not Resolved]
  - Dermatitis acneiform [Unknown]
  - Stomatitis [Unknown]
  - Erythema [Unknown]
